FAERS Safety Report 5104722-9 (Version None)
Quarter: 2006Q3

REPORT INFORMATION
  Report Type: 
  Country: None (occurrence: None)
  Receive Date: 20060911
  Receipt Date: 20060911
  Transmission Date: 20061208
  Serious: Yes (Life-Threatening, Hospitalization, Disabling)
  Sender: FDA-Public Use
  Company Number: None

PATIENT
  Age: 76 Year
  Sex: Female

DRUGS (2)
  1. HURRICAINE SPRAY   20%     BEUTLICH [Suspect]
     Indication: ANAESTHESIA
     Dosage: SPRAY SHOULDN'T EXCEED 1 SECON    MAY REPEAT ONCE    TOP
     Route: 061
     Dates: start: 20060831, end: 20060831
  2. HURRICAINE SPRAY   20%     BEUTLICH [Suspect]
     Indication: ENDOSCOPY
     Dosage: SPRAY SHOULDN'T EXCEED 1 SECON    MAY REPEAT ONCE    TOP
     Route: 061
     Dates: start: 20060831, end: 20060831

REACTIONS (5)
  - BLOOD METHAEMOGLOBIN PRESENT [None]
  - CYANOSIS [None]
  - HYPOXIA [None]
  - INAPPROPRIATE SCHEDULE OF DRUG ADMINISTRATION [None]
  - POST PROCEDURAL COMPLICATION [None]
